FAERS Safety Report 10422399 (Version 2)
Quarter: 2014Q4

REPORT INFORMATION
  Report Type: Spontaneous
  Country: JP (occurrence: JP)
  Receive Date: 20140901
  Receipt Date: 20141118
  Transmission Date: 20150528
  Serious: Yes (Death)
  Sender: FDA-Public Use
  Company Number: PHHY2010JP096574

PATIENT
  Age: 82 Year

DRUGS (1)
  1. EXJADE [Suspect]
     Active Substance: DEFERASIROX
     Indication: IRON OVERLOAD
     Dosage: 1000 MG, DAILY
     Route: 065
     Dates: start: 201002

REACTIONS (1)
  - Death [Fatal]

NARRATIVE: CASE EVENT DATE: 201006
